FAERS Safety Report 6023863-5 (Version None)
Quarter: 2008Q4

REPORT INFORMATION
  Report Type: 
  Country: None (occurrence: None)
  Receive Date: 20081223
  Receipt Date: 20081208
  Transmission Date: 20090506
  Serious: Yes (Hospitalization, Other)
  Sender: FDA-Public Use
  Company Number: 2008PL000280

PATIENT
  Age: 45 Year
  Sex: Female

DRUGS (6)
  1. AZATHIOPRINE [Suspect]
     Indication: SYSTEMIC LUPUS ERYTHEMATOSUS
  2. LAMIVUDINE [Concomitant]
  3. TACROLIMUS [Concomitant]
  4. CYCLOSPORINE [Concomitant]
  5. CYCLOPHOSPHAMIDE [Concomitant]
  6. RAPAMYCIN [Concomitant]

REACTIONS (9)
  - ATAXIA [None]
  - BILE DUCT STENOSIS [None]
  - COLITIS ULCERATIVE [None]
  - CONDITION AGGRAVATED [None]
  - HEPATIC FAILURE [None]
  - HEPATITIS B [None]
  - POLYNEUROPATHY [None]
  - TRANSPLANT REJECTION [None]
  - VANISHING BILE DUCT SYNDROME [None]
